FAERS Safety Report 9674651 (Version 2)
Quarter: 2013Q4

REPORT INFORMATION
  Report Type: Spontaneous
  Country: FI (occurrence: FI)
  Receive Date: 20131107
  Receipt Date: 20131114
  Transmission Date: 20140711
  Serious: Yes (Other)
  Sender: FDA-Public Use
  Company Number: FI-JNJFOC-20131018750

PATIENT
  Age: 10 Year
  Sex: Female

DRUGS (3)
  1. CONCERTA [Suspect]
     Indication: ATTENTION DEFICIT/HYPERACTIVITY DISORDER
     Route: 048
     Dates: start: 20130820, end: 20130926
  2. CONCERTA [Suspect]
     Indication: ATTENTION DEFICIT/HYPERACTIVITY DISORDER
     Route: 048
     Dates: start: 20130720, end: 20130820
  3. CARBAMAZEPINE [Concomitant]
     Indication: EPILEPSY
     Route: 065

REACTIONS (1)
  - Angioedema [Recovered/Resolved]
